FAERS Safety Report 25272388 (Version 1)
Quarter: 2025Q2

REPORT INFORMATION
  Report Type: Spontaneous
  Country: CN (occurrence: CN)
  Receive Date: 20250506
  Receipt Date: 20250506
  Transmission Date: 20250716
  Serious: Yes (Hospitalization, Other)
  Sender: Kenton Chemicals & Pharmaceuticals
  Company Number: CN-Kenton Chemicals + Pharmaceuticals Corporation-2176185

PATIENT
  Age: 63 Year
  Sex: Male

DRUGS (4)
  1. SELEGILINE HYDROCHLORIDE [Suspect]
     Active Substance: SELEGILINE HYDROCHLORIDE
     Indication: Parkinson^s disease
  2. CONTAC [Suspect]
     Active Substance: ACETAMINOPHEN\PHENYLEPHRINE HYDROCHLORIDE
     Dates: start: 20231121
  3. ENTACAPONE [Suspect]
     Active Substance: ENTACAPONE
  4. LEVODOPA [Suspect]
     Active Substance: LEVODOPA

REACTIONS (2)
  - Serotonin syndrome [Recovered/Resolved]
  - Drug interaction [Unknown]
